FAERS Safety Report 12884038 (Version 2)
Quarter: 2016Q4

REPORT INFORMATION
  Report Type: Spontaneous
  Country: US (occurrence: US)
  Receive Date: 20161026
  Receipt Date: 20161122
  Transmission Date: 20170207
  Serious: No
  Sender: FDA-Public Use
  Company Number: US-PFIZER INC-2016498005

PATIENT
  Age: 70 Year
  Sex: Male

DRUGS (4)
  1. GABAPENTIN. [Suspect]
     Active Substance: GABAPENTIN
     Indication: LUMBAR RADICULOPATHY
     Dosage: 400 MG, 1X/DAY (QHS)
     Route: 048
     Dates: start: 20150804, end: 20150901
  2. HYDROCODONE/ACETAMINOPHEN [Suspect]
     Active Substance: ACETAMINOPHEN\HYDROCODONE
     Indication: SPINAL OSTEOARTHRITIS
     Dosage: 1 DF, AS NEEDED ([HYDROCODONE: 10 MG]/[ACETAMINOPHEN: 325 MG] ONE TAILY P.R.N.)
     Route: 048
     Dates: start: 20150804, end: 20150901
  3. GABAPENTIN. [Suspect]
     Active Substance: GABAPENTIN
     Indication: SPINAL OSTEOARTHRITIS
  4. HYDROCODONE/ACETAMINOPHEN [Suspect]
     Active Substance: ACETAMINOPHEN\HYDROCODONE
     Indication: LUMBAR RADICULOPATHY
     Dosage: 1 TABLET DAILY, AS NEEDED (HYDROCODONE 10MG, PARACETAMOL 325MG)
     Route: 048

REACTIONS (3)
  - Product use issue [Unknown]
  - Somnolence [Unknown]
  - Drug hypersensitivity [Unknown]
